FAERS Safety Report 4719586-2 (Version None)
Quarter: 2005Q3

REPORT INFORMATION
  Report Type: 
  Country: None (occurrence: None)
  Receive Date: 20050721
  Receipt Date: 20031125
  Transmission Date: 20060218
  Serious: Yes (Other)
  Sender: FDA-Public Use
  Company Number: US-GLAXOSMITHKLINE-A0441713A

PATIENT
  Sex: Female
  Weight: 88.6 kg

DRUGS (16)
  1. AVANDIA [Suspect]
     Dosage: 8MG PER DAY
     Route: 048
     Dates: start: 20000819, end: 20010824
  2. LIPITOR [Concomitant]
     Dosage: 10MG PER DAY
     Route: 048
  3. ATENOLOL [Concomitant]
     Dosage: 25MG PER DAY
     Route: 048
  4. DIGOXIN [Concomitant]
     Dosage: .25MG TWICE PER DAY
     Route: 048
  5. LASIX [Concomitant]
     Route: 048
  6. CAPTOPRIL [Concomitant]
     Dosage: 25MG TWICE PER DAY
     Route: 048
  7. GLUCOPHAGE [Concomitant]
     Route: 048
     Dates: start: 19951018, end: 20000819
  8. NORVASC [Concomitant]
     Indication: DRUG USE FOR UNKNOWN INDICATION
     Route: 048
  9. SPIRONOLACTONE [Concomitant]
     Indication: DRUG USE FOR UNKNOWN INDICATION
     Route: 048
  10. ALTACE [Concomitant]
     Indication: DRUG USE FOR UNKNOWN INDICATION
     Route: 048
  11. ISOSORBIDE MONONITRATE [Concomitant]
     Indication: DRUG USE FOR UNKNOWN INDICATION
     Route: 048
  12. TOPROL-XL [Concomitant]
     Indication: DRUG USE FOR UNKNOWN INDICATION
     Route: 048
  13. LIPITOR [Concomitant]
     Indication: DRUG USE FOR UNKNOWN INDICATION
     Route: 048
  14. AUGMENTIN '125' [Concomitant]
     Indication: DRUG USE FOR UNKNOWN INDICATION
     Dosage: 500MG THREE TIMES PER DAY
     Route: 048
     Dates: start: 20010817
  15. TRIAMCINOLONE [Concomitant]
     Indication: DRUG USE FOR UNKNOWN INDICATION
     Route: 061
     Dates: start: 20010806
  16. GLUCOPHAGE XR [Concomitant]
     Indication: DRUG USE FOR UNKNOWN INDICATION
     Dosage: 500MG PER DAY
     Route: 048
     Dates: start: 20011005

REACTIONS (1)
  - CARDIAC FAILURE CONGESTIVE [None]
